FAERS Safety Report 11132408 (Version 2)
Quarter: 2015Q2

REPORT INFORMATION
  Report Type: Report from Study
  Country: US (occurrence: US)
  Receive Date: 20150522
  Receipt Date: 20150616
  Transmission Date: 20150821
  Serious: Yes (Other)
  Sender: FDA-Public Use
  Company Number: US-SA-2015SA068115

PATIENT
  Age: 55 Year
  Sex: Female

DRUGS (3)
  1. LANTUS [Suspect]
     Active Substance: INSULIN GLARGINE
     Indication: DIABETES MELLITUS
     Route: 065
     Dates: start: 200305, end: 201505
  2. BYETTA [Concomitant]
     Active Substance: EXENATIDE
  3. ACTOS [Concomitant]
     Active Substance: PIOGLITAZONE HYDROCHLORIDE
     Indication: DIABETES MELLITUS

REACTIONS (6)
  - Drug ineffective [Unknown]
  - Glycosylated haemoglobin increased [Unknown]
  - Fat tissue increased [Unknown]
  - Malaise [Unknown]
  - Intervertebral disc protrusion [Unknown]
  - Drug administration error [Unknown]
